FAERS Safety Report 9145418 (Version 2)
Quarter: 2013Q1

REPORT INFORMATION
  Report Type: Spontaneous
  Country: US (occurrence: US)
  Receive Date: 20130307
  Receipt Date: 20130320
  Transmission Date: 20140127
  Serious: Yes (Hospitalization, Other)
  Sender: FDA-Public Use
  Company Number: US-JNJFOC-20130215023

PATIENT
  Age: 77 Year
  Sex: Female
  Weight: 75.4 kg

DRUGS (8)
  1. XARELTO [Suspect]
     Indication: CEREBROVASCULAR ACCIDENT PROPHYLAXIS
     Route: 048
     Dates: start: 20130117
  2. XARELTO [Suspect]
     Indication: ATRIAL FIBRILLATION
     Route: 048
     Dates: start: 20130117
  3. CIPRO [Concomitant]
     Route: 065
  4. FLAGYL [Concomitant]
     Route: 065
  5. PRILOSEC [Concomitant]
     Route: 065
  6. PREDNISONE [Concomitant]
     Route: 065
  7. ZOCOR [Concomitant]
     Route: 065
  8. COREG [Concomitant]
     Route: 065

REACTIONS (7)
  - Gastrointestinal haemorrhage [Recovered/Resolved]
  - Diverticulitis [Recovered/Resolved]
  - Anaemia [Recovering/Resolving]
  - Intra-abdominal haematoma [Recovered/Resolved]
  - Coagulopathy [Recovered/Resolved]
  - Diverticular perforation [Recovered/Resolved]
  - Perforated ulcer [Recovered/Resolved]
